FAERS Safety Report 5657440-2 (Version None)
Quarter: 2008Q1

REPORT INFORMATION
  Report Type: 
  Country: None (occurrence: None)
  Receive Date: 20080310
  Receipt Date: 20080227
  Transmission Date: 20080703
  Serious: Yes (Hospitalization)
  Sender: FDA-Public Use
  Company Number: ES-PFIZER INC-2008018049

PATIENT
  Sex: Female

DRUGS (6)
  1. LYRICA [Suspect]
     Indication: NEURALGIA
     Dates: start: 20070101, end: 20070601
  2. GABAPENTIN [Suspect]
     Indication: NEURALGIA
     Dates: start: 20070101, end: 20070601
  3. ASPIRIN [Concomitant]
  4. ISCOVER [Concomitant]
     Route: 048
  5. PENTOXIFYLLINE [Concomitant]
  6. MST [Concomitant]

REACTIONS (1)
  - HEPATITIS TOXIC [None]
